FAERS Safety Report 8152201-7 (Version None)
Quarter: 2012Q1

REPORT INFORMATION
  Report Type: 
  Country: None (occurrence: None)
  Receive Date: 20120215
  Receipt Date: 20120215
  Transmission Date: 20120608
  Serious: Yes (Hospitalization)
  Sender: FDA-Public Use
  Company Number: None

PATIENT
  Age: 74 Year
  Sex: Female
  Weight: 88 kg

DRUGS (2)
  1. PRASUGREL 10 MG TABLET [Suspect]
     Dosage: 60 MG  X1 THAN 10 MG DAILY ORAL
     Route: 048
     Dates: start: 20120206
  2. INTEGRILIN [Suspect]
     Indication: ACUTE MYOCARDIAL INFARCTION
     Dosage: 2MCG/KG/MIN CONTINUOUS INFUSION IV
     Route: 042
     Dates: start: 20120206

REACTIONS (3)
  - ACUTE LUNG INJURY [None]
  - PULMONARY HAEMORRHAGE [None]
  - LUNG INFILTRATION [None]
